FAERS Safety Report 5677923-9 (Version None)
Quarter: 2008Q1

REPORT INFORMATION
  Report Type: 
  Country: None (occurrence: None)
  Receive Date: 20080325
  Receipt Date: 20080312
  Transmission Date: 20080703
  Serious: Yes (Hospitalization)
  Sender: FDA-Public Use
  Company Number: NL-RANBAXY-2008RR-13698

PATIENT

DRUGS (6)
  1. ACETAMINOPHEN [Suspect]
     Indication: INFLUENZA
     Dosage: 240 MG, QID
  2. ACETAMINOPHEN [Suspect]
     Indication: PYREXIA
  3. VALPROATE SODIUM [Suspect]
     Indication: MYOCLONIC EPILEPSY
     Dosage: UNK MG/KG, QD
  4. TOPIRAMATE [Suspect]
     Dosage: UNK MG/KG, QD
  5. LEVOCARNITINE [Concomitant]
     Dosage: 100 MG/KG, QD
  6. CARBAMAZEOINE [Concomitant]

REACTIONS (2)
  - DRUG INTERACTION [None]
  - LIVER INJURY [None]
